FAERS Safety Report 16367038 (Version 1)
Quarter: 2019Q2

REPORT INFORMATION
  Report Type: Spontaneous
  Country: CA (occurrence: CA)
  Receive Date: 20190529
  Receipt Date: 20190529
  Transmission Date: 20190711
  Serious: Yes (Hospitalization)
  Sender: FDA-Public Use
  Company Number: CA-TEVA-2019-CA-1056072

PATIENT
  Age: 23 Year
  Sex: Female
  Weight: 63 kg

DRUGS (3)
  1. QUETIAPINE. [Concomitant]
     Active Substance: QUETIAPINE
  2. LAMOTRIGINE. [Suspect]
     Active Substance: LAMOTRIGINE
     Indication: BIPOLAR DISORDER
     Dosage: 50 MILLIGRAM DAILY;
     Route: 048
  3. LAMOTRIGINE. [Suspect]
     Active Substance: LAMOTRIGINE
     Dosage: 75 MILLIGRAM DAILY;
     Route: 048

REACTIONS (5)
  - Rash generalised [Recovered/Resolved]
  - Oral mucosal blistering [Recovered/Resolved]
  - Rash erythematous [Recovered/Resolved]
  - Vaginal mucosal blistering [Recovered/Resolved]
  - Skin burning sensation [Recovered/Resolved]
